FAERS Safety Report 21903401 (Version 2)
Quarter: 2023Q2

REPORT INFORMATION
  Report Type: Spontaneous
  Country: SG (occurrence: SG)
  Receive Date: 20230124
  Receipt Date: 20230518
  Transmission Date: 20230721
  Serious: Yes (Death, Hospitalization, Other)
  Sender: FDA-Public Use
  Company Number: SG-PFIZER INC-202300031387

PATIENT
  Age: 39 Year
  Sex: Female

DRUGS (1)
  1. RITUXIMAB [Suspect]
     Active Substance: RITUXIMAB
     Indication: Haemolysis
     Dosage: UNK

REACTIONS (7)
  - Respiratory failure [Fatal]
  - Chest discomfort [Fatal]
  - Acute myocardial infarction [Fatal]
  - Pulmonary embolism [Fatal]
  - Pulmonary haemorrhage [Fatal]
  - Infection [Fatal]
  - Off label use [Unknown]
